FAERS Safety Report 18673035 (Version 1)
Quarter: 2020Q4

REPORT INFORMATION
  Report Type: Other
  Country: DE (occurrence: DE)
  Receive Date: 20201229
  Receipt Date: 20201229
  Transmission Date: 20210114
  Serious: Yes (Other)
  Sender: FDA-Public Use
  Company Number: DE-ROCHE-2736178

PATIENT
  Age: 28 Year
  Sex: Female

DRUGS (13)
  1. QUETIAPINE. [Concomitant]
     Active Substance: QUETIAPINE
     Dosage: AT NIGHTAT NIGHT
  2. DEKRISTOL [Concomitant]
     Active Substance: CHOLECALCIFEROL
     Dosage: IN THE MORNING
  3. CITALOPRAM [Concomitant]
     Active Substance: CITALOPRAM HYDROBROMIDE
     Dosage: IN THE MORNINGIN THE MORNING
  4. OCREVUS [Suspect]
     Active Substance: OCRELIZUMAB
     Indication: RELAPSING-REMITTING MULTIPLE SCLEROSIS
     Route: 042
     Dates: start: 20201202
  5. OXYCODONE [Concomitant]
     Active Substance: OXYCODONE
  6. LACTULOSE. [Concomitant]
     Active Substance: LACTULOSE
  7. PRACTO-CLYSS [Concomitant]
     Active Substance: SODIUM PHOSPHATE, DIBASIC\SODIUM PHOSPHATE, MONOBASIC, ANHYDROUS
     Dosage: EVERY THIRD DAY
  8. GABAPENTIN. [Concomitant]
     Active Substance: GABAPENTIN
     Dosage: 1-0-1
  9. OCREVUS [Suspect]
     Active Substance: OCRELIZUMAB
     Route: 042
     Dates: start: 20201216
  10. SUMATRIPTAN. [Concomitant]
     Active Substance: SUMATRIPTAN
  11. L-THYROXINE [Concomitant]
     Active Substance: LEVOTHYROXINE
  12. BIOTIN [Concomitant]
     Active Substance: BIOTIN
  13. NOVALGIN (METAMIZOLE SODIUM) [Concomitant]
     Active Substance: METAMIZOLE SODIUM

REACTIONS (5)
  - Pain [Recovering/Resolving]
  - Pyrexia [Recovered/Resolved]
  - Dysphagia [Recovering/Resolving]
  - Multiple sclerosis [Recovered/Resolved]
  - Paraesthesia [Recovering/Resolving]

NARRATIVE: CASE EVENT DATE: 20201202
